FAERS Safety Report 15347185 (Version 2)
Quarter: 2018Q3

REPORT INFORMATION
  Report Type: Spontaneous
  Country: US (occurrence: US)
  Receive Date: 20180904
  Receipt Date: 20180924
  Transmission Date: 20181010
  Serious: No
  Sender: FDA-Public Use
  Company Number: US-ASTRAZENECA-2018SF03872

PATIENT
  Age: 838 Month
  Sex: Female

DRUGS (4)
  1. FLONASE [Concomitant]
     Active Substance: FLUTICASONE PROPIONATE
     Indication: MULTIPLE ALLERGIES
  2. PULMICORT FLEXHALER [Suspect]
     Active Substance: BUDESONIDE
     Indication: ASTHMA
     Dosage: 180 MCG, TWO INHALATIONS, EVERY OTHER DAY
     Route: 055
  3. PULMICORT FLEXHALER [Suspect]
     Active Substance: BUDESONIDE
     Indication: ASTHMA
     Dosage: 90 MCG, TWICE DAILY
     Route: 055
  4. ASTELIN [Concomitant]
     Active Substance: AZELASTINE HYDROCHLORIDE
     Indication: MULTIPLE ALLERGIES

REACTIONS (6)
  - Productive cough [Not Recovered/Not Resolved]
  - Intentional device misuse [Not Recovered/Not Resolved]
  - Nervousness [Not Recovered/Not Resolved]
  - Drug dose omission by device [Not Recovered/Not Resolved]
  - Off label use [Not Recovered/Not Resolved]
  - Device failure [Unknown]

NARRATIVE: CASE EVENT DATE: 201807
